FAERS Safety Report 7741176-8 (Version None)
Quarter: 2011Q3

REPORT INFORMATION
  Report Type: 
  Country: None (occurrence: None)
  Receive Date: 20110909
  Receipt Date: 20110829
  Transmission Date: 20111222
  Serious: Yes (Hospitalization, Other)
  Sender: FDA-Public Use
  Company Number: NO-ELI_LILLY_AND_COMPANY-NO201108009065

PATIENT
  Sex: Female

DRUGS (8)
  1. NORLEVO [Concomitant]
     Dosage: UNK
     Dates: start: 20110715, end: 20110715
  2. OXAZEPAM [Concomitant]
     Dosage: 10 MG, PRN
     Route: 048
  3. DEPO-PROVERA [Concomitant]
     Dosage: 150 MG, UNK
     Route: 030
     Dates: start: 20110804
  4. ZYPREXA [Suspect]
     Dosage: UNK, UNKNOWN
  5. NORLEVO [Concomitant]
     Indication: POST COITAL CONTRACEPTION
     Dosage: UNK
     Dates: start: 20110701, end: 20110701
  6. ESCITALOPRAM [Concomitant]
     Indication: DEPRESSION
     Dosage: 10 MG, QD
     Route: 048
     Dates: start: 20110609
  7. ZYPREXA [Suspect]
     Indication: PSYCHOTIC DISORDER
     Dosage: 15 MG, QD
     Route: 048
     Dates: start: 20110301
  8. DUPHALAC [Concomitant]
     Dosage: UNK, PRN

REACTIONS (5)
  - DRUG LEVEL INCREASED [None]
  - MASKED FACIES [None]
  - PULMONARY EMBOLISM [None]
  - WEIGHT INCREASED [None]
  - JOINT STIFFNESS [None]
